FAERS Safety Report 20442866 (Version 1)
Quarter: 2022Q1

REPORT INFORMATION
  Report Type: Report from Study
  Country: US (occurrence: US)
  Receive Date: 20220208
  Receipt Date: 20220208
  Transmission Date: 20220423
  Serious: No
  Sender: FDA-Public Use
  Company Number: US-NOVARTISTESTPH-NVSC2022US026619

PATIENT
  Age: 57 Year
  Sex: Male

DRUGS (1)
  1. ENTRESTO [Suspect]
     Active Substance: SACUBITRIL\VALSARTAN
     Indication: Cardiac failure
     Dosage: 100 MG, QD  (SACUBITRIL: 49MG AND VALSARTAN:51MG)
     Route: 048
     Dates: start: 20210801

REACTIONS (1)
  - Pollakiuria [Unknown]

NARRATIVE: CASE EVENT DATE: 20210801
